FAERS Safety Report 17585629 (Version 1)
Quarter: 2020Q1

REPORT INFORMATION
  Report Type: Spontaneous
  Country: TR (occurrence: TR)
  Receive Date: 20200326
  Receipt Date: 20200326
  Transmission Date: 20200409
  Serious: Yes (Other)
  Sender: FDA-Public Use
  Company Number: TR-TEVA-2020-TR-1213527

PATIENT

DRUGS (1)
  1. BUDECORT [Suspect]
     Active Substance: BUDESONIDE
     Dosage: UNKNOWN

REACTIONS (1)
  - Aspergillus infection [Unknown]
